FAERS Safety Report 4433639-8 (Version None)
Quarter: 2004Q3

REPORT INFORMATION
  Report Type: 
  Country: None (occurrence: None)
  Receive Date: 20040824
  Receipt Date: 20040811
  Transmission Date: 20050211
  Serious: Yes (Other)
  Sender: FDA-Public Use
  Company Number: S04-USA-02765-01

PATIENT
  Age: 44 Year
  Sex: Female
  Weight: 127.0072 kg

DRUGS (5)
  1. LEXAPRO [Suspect]
     Indication: DEPRESSION
     Dosage: 10 MG QD PO
     Route: 048
     Dates: start: 20040413, end: 20040424
  2. DITROPAN [Concomitant]
  3. BUSPAR [Concomitant]
  4. THYROID TAB [Concomitant]
  5. EFFEXOR [Concomitant]

REACTIONS (3)
  - GASTRITIS [None]
  - HEPATITIS [None]
  - LIPASE DECREASED [None]
